FAERS Safety Report 18474658 (Version 5)
Quarter: 2021Q2

REPORT INFORMATION
  Report Type: Report from Study
  Country: GB (occurrence: GB)
  Receive Date: 20201106
  Receipt Date: 20210602
  Transmission Date: 20210717
  Serious: Yes (Hospitalization, Other)
  Sender: FDA-Public Use
  Company Number: NVSC2020GB292080

PATIENT
  Sex: Male

DRUGS (3)
  1. SANDOSTATIN LAR DEPOT [Suspect]
     Active Substance: OCTREOTIDE ACETATE
     Indication: NEUROENDOCRINE TUMOUR
     Dosage: 30 MG, Q3W
     Route: 030
     Dates: start: 20160319
  2. SANDOSTATIN LAR DEPOT [Suspect]
     Active Substance: OCTREOTIDE ACETATE
     Dosage: 30 MG, Q3W
     Route: 030
     Dates: start: 20190319
  3. SANDOSTATIN LAR DEPOT [Suspect]
     Active Substance: OCTREOTIDE ACETATE
     Dosage: 30 MG, Q3W
     Route: 030

REACTIONS (11)
  - Anal fissure [Unknown]
  - Decubitus ulcer [Unknown]
  - Inappropriate schedule of product administration [Unknown]
  - Ulcer haemorrhage [Unknown]
  - Anal erythema [Unknown]
  - Urinary tract infection [Unknown]
  - Contusion [Unknown]
  - Phantom limb syndrome [Unknown]
  - Postoperative wound infection [Unknown]
  - Proctalgia [Unknown]
  - Fall [Unknown]

NARRATIVE: CASE EVENT DATE: 20200922
